FAERS Safety Report 16969052 (Version 1)
Quarter: 2019Q4

REPORT INFORMATION
  Report Type: Spontaneous
  Country: GB (occurrence: GB)
  Receive Date: 20191029
  Receipt Date: 20191029
  Transmission Date: 20200122
  Serious: Yes (Hospitalization, Other)
  Sender: FDA-Public Use
  Company Number: GB-TEVA-2019-GB-1128311

PATIENT
  Age: 66 Year
  Sex: Male
  Weight: 86.35 kg

DRUGS (13)
  1. IBUPROFEN. [Concomitant]
     Active Substance: IBUPROFEN
  2. LACTULOSE. [Concomitant]
     Active Substance: LACTULOSE
  3. OLANZAPINE. [Concomitant]
     Active Substance: OLANZAPINE
  4. BUPRENORPHINE. [Suspect]
     Active Substance: BUPRENORPHINE
     Indication: PAIN
     Dosage: 15 MCG PER HOUR
     Route: 062
     Dates: start: 20190706, end: 20190926
  5. HALOPERIDOL. [Concomitant]
     Active Substance: HALOPERIDOL
  6. LORAZEPAM. [Concomitant]
     Active Substance: LORAZEPAM
  7. MORPHINE [Concomitant]
     Active Substance: MORPHINE
  8. PARACETAMOL [Concomitant]
     Active Substance: ACETAMINOPHEN
  9. MOVICOL [Concomitant]
     Active Substance: POLYETHYLENE GLYCOL 3350\POTASSIUM CHLORIDE\SODIUM BICARBONATE\SODIUM CHLORIDE
  10. PROMETHAZINE [Concomitant]
     Active Substance: PROMETHAZINE HYDROCHLORIDE
  11. CLOPIDOGREL [Concomitant]
     Active Substance: CLOPIDOGREL BISULFATE
  12. DIAZEPAM. [Concomitant]
     Active Substance: DIAZEPAM
  13. LINAGLIPTIN [Concomitant]
     Active Substance: LINAGLIPTIN

REACTIONS (4)
  - Agitation [Recovering/Resolving]
  - Aggression [Recovering/Resolving]
  - Hallucination [Recovering/Resolving]
  - Inappropriate affect [Recovering/Resolving]
